FAERS Safety Report 10069130 (Version 1)
Quarter: 2014Q2

REPORT INFORMATION
  Report Type: Spontaneous
  Country: GB (occurrence: GB)
  Receive Date: 20140409
  Receipt Date: 20140409
  Transmission Date: 20141212
  Serious: Yes (Other)
  Sender: FDA-Public Use
  Company Number: GB-MERCK-1404GBR004022

PATIENT
  Sex: 0

DRUGS (1)
  1. INVANZ [Suspect]

REACTIONS (1)
  - Haemofiltration [Unknown]
